FAERS Safety Report 7739243-8 (Version None)
Quarter: 2011Q3

REPORT INFORMATION
  Report Type: 
  Country: None (occurrence: None)
  Receive Date: 20110909
  Receipt Date: 20110829
  Transmission Date: 20111222
  Serious: Yes (Other)
  Sender: FDA-Public Use
  Company Number: US-JNJFOC-20110901139

PATIENT
  Sex: Male
  Weight: 87.54 kg

DRUGS (2)
  1. ITRACONAZOLE [Suspect]
     Indication: ONYCHOMYCOSIS
     Route: 048
     Dates: start: 20110201, end: 20110601
  2. TRAMADOL HYDROCHLORIDE [Concomitant]
     Indication: PAIN
     Route: 048
     Dates: start: 20090101

REACTIONS (18)
  - CHROMATURIA [None]
  - NAUSEA [None]
  - FIBROMYALGIA [None]
  - PARAESTHESIA [None]
  - POLLAKIURIA [None]
  - DYSPNOEA [None]
  - AMNESIA [None]
  - VISUAL ACUITY REDUCED [None]
  - MUSCLE SPASMS [None]
  - GYNAECOMASTIA [None]
  - VITAMIN B COMPLEX DEFICIENCY [None]
  - RASH [None]
  - HEADACHE [None]
  - HYPOAESTHESIA [None]
  - ANAEMIA [None]
  - BLOOD POTASSIUM DECREASED [None]
  - FATIGUE [None]
  - ALOPECIA [None]
